FAERS Safety Report 6828393-6 (Version None)
Quarter: 2010Q3

REPORT INFORMATION
  Report Type: 
  Country: None (occurrence: None)
  Receive Date: 20100709
  Receipt Date: 20070207
  Transmission Date: 20110219
  Serious: No
  Sender: FDA-Public Use
  Company Number: US-PFIZER INC-2007010695

PATIENT
  Sex: Male
  Weight: 140.61 kg

DRUGS (9)
  1. CHANTIX [Suspect]
     Indication: SMOKING CESSATION THERAPY
     Dates: start: 20070206
  2. ACTOS [Concomitant]
  3. GABAPENTIN [Concomitant]
  4. ACCUPRIL [Concomitant]
  5. DYAZIDE [Concomitant]
  6. PROPRANOLOL [Concomitant]
  7. AMBIEN [Concomitant]
  8. ACETYLSALICYLIC ACID [Concomitant]
  9. GLIPIZIDE [Concomitant]

REACTIONS (1)
  - DIZZINESS [None]
